FAERS Safety Report 8117784-1 (Version None)
Quarter: 2012Q1

REPORT INFORMATION
  Report Type: 
  Country: None (occurrence: None)
  Receive Date: 20120207
  Receipt Date: 20120124
  Transmission Date: 20120608
  Serious: Yes (Other)
  Sender: FDA-Public Use
  Company Number: IN-RANBAXY-2012RR-52189

PATIENT
  Age: 45 Year
  Sex: Male

DRUGS (10)
  1. LORAZEPAM [Concomitant]
     Indication: PRODUCT USED FOR UNKNOWN INDICATION
     Dosage: UNK
     Route: 065
  2. MIRTAZAPINE [Concomitant]
     Indication: SLEEP DISORDER
     Dosage: UNK
     Route: 065
  3. ZOLPIDEM TARTRATE [Suspect]
     Dosage: 15 MG, UNK
     Route: 065
  4. ZOLPIDEM TARTRATE [Suspect]
     Dosage: 20 MG, UNK
     Route: 065
  5. ZOLPIDEM TARTRATE [Suspect]
     Dosage: 25 MG, UNK
     Route: 065
  6. ZOLPIDEM TARTRATE [Suspect]
     Dosage: 7.5 MG, UNK
     Route: 065
  7. ZOLPIDEM TARTRATE [Suspect]
     Indication: SLEEP DISORDER
     Dosage: 10 MG, UNK
     Route: 065
  8. ESCITALOPRAM [Concomitant]
     Indication: PRODUCT USED FOR UNKNOWN INDICATION
     Dosage: UNK
     Route: 065
  9. ZOLPIDEM TARTRATE [Suspect]
     Dosage: 20 MG, UNK
     Route: 065
  10. PROPRANOLOL [Concomitant]
     Indication: PRODUCT USED FOR UNKNOWN INDICATION
     Dosage: UNK
     Route: 065

REACTIONS (3)
  - DRUG WITHDRAWAL SYNDROME [None]
  - INCORRECT DOSE ADMINISTERED [None]
  - DELIRIUM [None]
